FAERS Safety Report 9849932 (Version 3)
Quarter: 2014Q2

REPORT INFORMATION
  Report Type: Spontaneous
  Country: US (occurrence: US)
  Receive Date: 20140128
  Receipt Date: 20140407
  Transmission Date: 20141212
  Serious: Yes (Other)
  Sender: FDA-Public Use
  Company Number: US-TEVA-458941USA

PATIENT
  Age: 33 Year
  Sex: Female

DRUGS (2)
  1. PARAGARD 380A [Suspect]
     Indication: CONTRACEPTION
     Route: 015
     Dates: start: 20061128, end: 20140121
  2. PARAGARD 380A [Suspect]
     Dates: start: 20140305

REACTIONS (3)
  - Medical device complication [Recovered/Resolved]
  - Bacterial vaginosis [Unknown]
  - Vaginal haemorrhage [Unknown]
